FAERS Safety Report 8341327-0 (Version None)
Quarter: 2012Q2

REPORT INFORMATION
  Report Type: 
  Country: None (occurrence: None)
  Receive Date: 20120507
  Receipt Date: 20120427
  Transmission Date: 20120825
  Serious: Yes (Hospitalization, Disabling)
  Sender: FDA-Public Use
  Company Number: JP-ASTRAZENECA-2012SE15345

PATIENT
  Sex: Female

DRUGS (4)
  1. INSIDON [Concomitant]
     Route: 048
  2. CANDESARTAN CILEXETIL [Suspect]
     Indication: HYPERTENSION
     Route: 048
     Dates: start: 20061101, end: 20120301
  3. BIFITERAL [Concomitant]
     Route: 048
  4. NITREGAMMA [Concomitant]
     Route: 048

REACTIONS (6)
  - ARTHRALGIA [None]
  - POLYMYALGIA RHEUMATICA [None]
  - PRURITUS [None]
  - ALOPECIA [None]
  - RASH PUSTULAR [None]
  - MYALGIA [None]
